FAERS Safety Report 4821591-2 (Version None)
Quarter: 2005Q4

REPORT INFORMATION
  Report Type: 
  Country: None (occurrence: None)
  Receive Date: 20051107
  Receipt Date: 20051102
  Transmission Date: 20060501
  Serious: Yes (Life-Threatening, Hospitalization)
  Sender: FDA-Public Use
  Company Number: US-GLAXOSMITHKLINE-A0580720A

PATIENT
  Age: 71 Year

DRUGS (7)
  1. ECOTRIN REGULAR STRENGTH TABLETS [Suspect]
     Dates: start: 19870101, end: 20051001
  2. NEXIUM [Concomitant]
  3. ATENOLOL [Concomitant]
  4. ERYTHROMYCIN [Concomitant]
  5. AMOXICILLIN [Concomitant]
  6. MULTI-VITAMIN [Concomitant]
  7. FOLGARD [Concomitant]

REACTIONS (11)
  - BLOOD PRESSURE SYSTOLIC DECREASED [None]
  - DYSPEPSIA [None]
  - FAECES DISCOLOURED [None]
  - GASTRIC HAEMORRHAGE [None]
  - HAEMATOCRIT DECREASED [None]
  - HELICOBACTER INFECTION [None]
  - JEJUNAL ULCER [None]
  - LOSS OF CONSCIOUSNESS [None]
  - ORTHOSTATIC HYPOTENSION [None]
  - POOR QUALITY DRUG ADMINISTERED [None]
  - RECTAL HAEMORRHAGE [None]
